FAERS Safety Report 6092986-7 (Version None)
Quarter: 2009Q1

REPORT INFORMATION
  Report Type: 
  Country: None (occurrence: None)
  Receive Date: 20090219
  Receipt Date: 20090204
  Transmission Date: 20090719
  Serious: Yes (Hospitalization)
  Sender: FDA-Public Use
  Company Number: 2009US000143

PATIENT
  Age: 57 Year
  Sex: Male
  Weight: 122.4 kg

DRUGS (6)
  1. AMEVIVE [Suspect]
     Indication: PSORIASIS
     Dosage: 15 MG, WEEKLY, INTRAMUSCULAR; 15 MG, WEEKLY, INTRAMUSCULAR
     Route: 030
     Dates: start: 20070711, end: 20070926
  2. AMEVIVE [Suspect]
     Indication: PSORIASIS
     Dosage: 15 MG, WEEKLY, INTRAMUSCULAR; 15 MG, WEEKLY, INTRAMUSCULAR
     Route: 030
     Dates: start: 20080312, end: 20080625
  3. OMPEPRAZOLE [Concomitant]
  4. LISINOPRIL [Concomitant]
  5. ASPIRIN [Concomitant]
  6. SORIATANE [Concomitant]

REACTIONS (2)
  - CHRONIC OBSTRUCTIVE PULMONARY DISEASE [None]
  - CONDITION AGGRAVATED [None]
